FAERS Safety Report 25114097 (Version 1)
Quarter: 2025Q1

REPORT INFORMATION
  Report Type: Spontaneous
  Country: US (occurrence: US)
  Receive Date: 20250324
  Receipt Date: 20250324
  Transmission Date: 20250409
  Serious: Yes (Hospitalization)
  Sender: UPSHER SMITH LABORATORIES
  Company Number: US-UPSHER-SMITH LABORATORIES, LLC-20250200597

PATIENT
  Sex: Male
  Weight: 12.018 kg

DRUGS (2)
  1. VIGAFYDE [Suspect]
     Active Substance: VIGABATRIN
     Indication: Infantile spasms
     Route: 048
     Dates: start: 20241225
  2. ALBUTEROL [Concomitant]
     Active Substance: ALBUTEROL
     Indication: Neonatal respiratory distress syndrome

REACTIONS (1)
  - Decreased appetite [Recovering/Resolving]
